FAERS Safety Report 4622189-1 (Version None)
Quarter: 2005Q1

REPORT INFORMATION
  Report Type: 
  Country: None (occurrence: None)
  Receive Date: 20050324
  Receipt Date: 20050324
  Transmission Date: 20050727
  Serious: No
  Sender: FDA-Public Use
  Company Number: None

PATIENT
  Sex: Female
  Weight: 55 kg

DRUGS (3)
  1. ETOPOSIDE [Suspect]
     Dosage: 10 MG/KG/DAY CIV
     Route: 042
     Dates: start: 20041105
  2. CYTARABINE [Suspect]
     Dosage: 2 G/M2 IV OVER 2 HOURS Q12H ON DAYS 1-4 (TOTAL OF 8 DOSES)
  3. G-CSF [Suspect]
     Dosage: 10 MCG/KG/DAY SC BEGINNING ON DAY 14 UNTIL PBSC COLLECTION IS COMPLETED OR WBC } 50,000/MCL
     Route: 058

REACTIONS (8)
  - ASCITES [None]
  - BACTERIA STOOL IDENTIFIED [None]
  - COLITIS [None]
  - ILEUS [None]
  - NAUSEA [None]
  - PLEURAL EFFUSION [None]
  - PNEUMATOSIS CYSTOIDES INTESTINALIS [None]
  - RETCHING [None]
